FAERS Safety Report 20666991 (Version 3)
Quarter: 2022Q3

REPORT INFORMATION
  Report Type: Report from Study
  Country: TW (occurrence: TW)
  Receive Date: 20220404
  Receipt Date: 20220720
  Transmission Date: 20221026
  Serious: Yes (Other)
  Sender: FDA-Public Use
  Company Number: TW-BAYER-2022A047134

PATIENT
  Sex: Female

DRUGS (2)
  1. EYLEA [Suspect]
     Active Substance: AFLIBERCEPT
     Indication: Neovascular age-related macular degeneration
     Dosage: 0.05 ML, ONCE, RIGHT EYE, SOLUTION FOR INJECTION
     Route: 031
     Dates: start: 202202, end: 202202
  2. EYLEA [Suspect]
     Active Substance: AFLIBERCEPT
     Dosage: 0.05 ML, ONCE, RIGHT EYE, SOLUTION FOR INJECTION
     Route: 031
     Dates: start: 20220325

REACTIONS (4)
  - Eye haemorrhage [Recovering/Resolving]
  - Fear of injection [Unknown]
  - Heart rate increased [Unknown]
  - Spinal pain [Recovering/Resolving]

NARRATIVE: CASE EVENT DATE: 20220201
